FAERS Safety Report 5409286-8 (Version None)
Quarter: 2007Q3

REPORT INFORMATION
  Report Type: 
  Country: None (occurrence: None)
  Receive Date: 20070808
  Receipt Date: 20070808
  Transmission Date: 20080115
  Serious: Yes (Hospitalization)
  Sender: FDA-Public Use
  Company Number: None

PATIENT
  Age: 27 Year
  Sex: Female
  Weight: 55 kg

DRUGS (2)
  1. SEROQUEL [Suspect]
     Indication: SCHIZOPHRENIA
     Dosage: 500MG QDAY PO
     Route: 048
     Dates: start: 20070713, end: 20070714
  2. SEROQUEL [Suspect]
     Indication: SCHIZOPHRENIA
     Dosage: 250MG QDAY PO
     Route: 048
     Dates: start: 20070715

REACTIONS (1)
  - LIVER FUNCTION TEST ABNORMAL [None]
